FAERS Safety Report 7623459-5 (Version None)
Quarter: 2011Q3

REPORT INFORMATION
  Report Type: 
  Country: None (occurrence: None)
  Receive Date: 20110720
  Receipt Date: 20110712
  Transmission Date: 20111222
  Serious: Yes (Life-Threatening, Hospitalization)
  Sender: FDA-Public Use
  Company Number: PHHY2011GB60820

PATIENT
  Age: 31 Year
  Sex: Female

DRUGS (3)
  1. RAMIPRIL [Suspect]
     Dosage: 10 MG, QD
  2. MESALAMINE [Concomitant]
     Dosage: 800 MG, BID
  3. BENDROFLUMETHIAZIDE [Suspect]
     Indication: HYPERTENSION
     Dosage: 5 MG, UNK

REACTIONS (11)
  - WATER INTOXICATION [None]
  - CONVULSION [None]
  - PRESYNCOPE [None]
  - CARDIAC ARREST [None]
  - HYPOKALAEMIA [None]
  - CONFUSIONAL STATE [None]
  - PALPITATIONS [None]
  - ASTHENIA [None]
  - VOMITING [None]
  - HYPONATRAEMIA [None]
  - PARAESTHESIA [None]
